FAERS Safety Report 8390013-X (Version None)
Quarter: 2012Q2

REPORT INFORMATION
  Report Type: 
  Country: None (occurrence: None)
  Receive Date: 20120529
  Receipt Date: 20120522
  Transmission Date: 20120825
  Serious: No
  Sender: FDA-Public Use
  Company Number: US-PFIZER INC-2012078766

PATIENT
  Sex: Male
  Weight: 35.374 kg

DRUGS (9)
  1. CONCERTA [Concomitant]
     Indication: AFFECTIVE DISORDER
     Dosage: DAILY
  2. GENOTROPIN [Suspect]
     Indication: BODY HEIGHT BELOW NORMAL
  3. RITALIN [Concomitant]
     Indication: AFFECTIVE DISORDER
     Dosage: DAILY
  4. GENOTROPIN [Suspect]
     Indication: BLOOD GROWTH HORMONE
     Dosage: 2 MG, 1X/DAY
     Route: 058
     Dates: start: 20120321, end: 20120410
  5. ZOLOFT [Concomitant]
     Indication: AFFECTIVE DISORDER
     Dosage: DAILY
  6. RISPERIDONE [Concomitant]
     Dosage: UNK, 2X/DAY
  7. METHYLPHENIDATE [Concomitant]
     Dosage: UNK
  8. SERTRALINE [Concomitant]
     Dosage: UNK, 1X/DAY
  9. RISPERDAL [Concomitant]
     Indication: AFFECTIVE DISORDER
     Dosage: DAILY

REACTIONS (2)
  - DECREASED APPETITE [None]
  - RASH [None]
